FAERS Safety Report 25611383 (Version 1)
Quarter: 2025Q3

REPORT INFORMATION
  Report Type: Spontaneous
  Country: EU (occurrence: EU)
  Receive Date: 20250728
  Receipt Date: 20250728
  Transmission Date: 20251021
  Serious: Yes (Other)
  Sender: BOEHRINGER INGELHEIM
  Company Number: None

PATIENT
  Age: 79 Year
  Sex: Female

DRUGS (5)
  1. OFEV [Suspect]
     Active Substance: NINTEDANIB
     Indication: Idiopathic pulmonary fibrosis
     Route: 048
     Dates: start: 20211203
  2. DONEPEZILO KERN PHARMA 5 mg COMPRIMIDOS RECUBIERTOS CON PELICULA EFG, [Concomitant]
     Indication: Cognitive disorder
     Route: 048
     Dates: start: 20250606
  3. VALSARTAN ALMUS 320 mg COMPRIMIDOS RECUBIERTOS CON PELICULA EFG, 28 co [Concomitant]
     Indication: Product used for unknown indication
     Route: 048
     Dates: start: 20220615
  4. BRIMICA GENUAIR 340/12 microgramos polvo para inhalacion 60 dosis [Concomitant]
     Indication: Product used for unknown indication
     Route: 055
     Dates: start: 20250226
  5. TARDYFERON 80 mg COMPRIMIDOS DE LIBERACI?N PROLONGADA, 30 comprimidos [Concomitant]
     Indication: Product used for unknown indication
     Route: 048
     Dates: start: 20250502

REACTIONS (2)
  - Diarrhoea [Unknown]
  - Colitis microscopic [Unknown]

NARRATIVE: CASE EVENT DATE: 20230101
